FAERS Safety Report 17264671 (Version 1)
Quarter: 2020Q1

REPORT INFORMATION
  Report Type: Spontaneous
  Country: US (occurrence: US)
  Receive Date: 20200113
  Receipt Date: 20200113
  Transmission Date: 20200409
  Serious: Yes (Death, Hospitalization)
  Sender: FDA-Public Use
  Company Number: US-BAYER-2020-003246

PATIENT
  Age: 45 Year
  Sex: Female

DRUGS (5)
  1. LIDOCAINE. [Suspect]
     Active Substance: LIDOCAINE
  2. ALCOHOL. [Suspect]
     Active Substance: ALCOHOL
  3. SERTRALINE [Suspect]
     Active Substance: SERTRALINE HYDROCHLORIDE
  4. PARACETAMOL [Suspect]
     Active Substance: ACETAMINOPHEN
  5. QUETIAPINE. [Suspect]
     Active Substance: QUETIAPINE

REACTIONS (3)
  - Intentional overdose [Fatal]
  - Intentional product use issue [Fatal]
  - Toxicity to various agents [Fatal]
